FAERS Safety Report 4794842-0 (Version None)
Quarter: 2005Q3

REPORT INFORMATION
  Report Type: 
  Country: None (occurrence: None)
  Receive Date: 20050914
  Receipt Date: 20040907
  Transmission Date: 20060218
  Serious: Yes (Hospitalization, Disabling)
  Sender: FDA-Public Use
  Company Number: 163-20785-04090147

PATIENT
  Age: 72 Year
  Sex: Male

DRUGS (7)
  1. THALOMID [Suspect]
     Indication: MULTIPLE MYELOMA
     Dosage: 200 MG, DAILY, ORAL;  50 MG, DAILY, ORAL;  100 MG, DAILY, ORAL
     Route: 048
     Dates: start: 20040601, end: 20040607
  2. THALOMID [Suspect]
     Indication: PLASMACYTOMA
     Dosage: 200 MG, DAILY, ORAL;  50 MG, DAILY, ORAL;  100 MG, DAILY, ORAL
     Route: 048
     Dates: start: 20040601, end: 20040607
  3. THALOMID [Suspect]
     Indication: MULTIPLE MYELOMA
     Dosage: 200 MG, DAILY, ORAL;  50 MG, DAILY, ORAL;  100 MG, DAILY, ORAL
     Route: 048
     Dates: start: 20040608, end: 20040615
  4. THALOMID [Suspect]
     Indication: PLASMACYTOMA
     Dosage: 200 MG, DAILY, ORAL;  50 MG, DAILY, ORAL;  100 MG, DAILY, ORAL
     Route: 048
     Dates: start: 20040608, end: 20040615
  5. THALOMID [Suspect]
     Indication: MULTIPLE MYELOMA
     Dosage: 200 MG, DAILY, ORAL;  50 MG, DAILY, ORAL;  100 MG, DAILY, ORAL
     Route: 048
     Dates: start: 20040629, end: 20040801
  6. THALOMID [Suspect]
     Indication: PLASMACYTOMA
     Dosage: 200 MG, DAILY, ORAL;  50 MG, DAILY, ORAL;  100 MG, DAILY, ORAL
     Route: 048
     Dates: start: 20040629, end: 20040801
  7. ORAL DIABETIC AGENT [Concomitant]

REACTIONS (2)
  - DEEP VEIN THROMBOSIS [None]
  - RASH [None]
